FAERS Safety Report 4813660-8 (Version None)
Quarter: 2005Q4

REPORT INFORMATION
  Report Type: 
  Country: None (occurrence: None)
  Receive Date: 20051028
  Receipt Date: 20050224
  Transmission Date: 20060501
  Serious: No
  Sender: FDA-Public Use
  Company Number: US-GLAXOSMITHKLINE-A0547168A

PATIENT
  Sex: Female

DRUGS (13)
  1. IMITREX [Suspect]
     Indication: MIGRAINE
     Dosage: 20MG TWO TIMES PER WEEK
     Route: 045
     Dates: start: 20041001
  2. METFORMIN HCL [Concomitant]
  3. ACTOS [Concomitant]
  4. PLAVIX [Concomitant]
  5. ZESTRIL [Concomitant]
  6. NORVASC [Concomitant]
  7. FLEXERIL [Concomitant]
  8. AMITRIPTYLINE HCL [Concomitant]
  9. ACCOLATE [Concomitant]
  10. SYNTHROID [Concomitant]
  11. ADVAIR DISKUS 100/50 [Concomitant]
  12. ALBUTEROL [Concomitant]
  13. INTAL [Concomitant]

REACTIONS (2)
  - HYPOAESTHESIA [None]
  - SOMNOLENCE [None]
